FAERS Safety Report 5277918-3 (Version None)
Quarter: 2007Q1

REPORT INFORMATION
  Report Type: 
  Country: None (occurrence: None)
  Receive Date: 20070321
  Receipt Date: 20070312
  Transmission Date: 20070707
  Serious: Yes (Life-Threatening, Hospitalization)
  Sender: FDA-Public Use
  Company Number: 208260

PATIENT
  Age: 76 Year
  Sex: Female
  Weight: 99.8 kg

DRUGS (6)
  1. XOLAIR [Suspect]
     Indication: ASTHMA
     Dosage: 300 MG, 1/MONTH
     Dates: start: 20040506, end: 20040803
  2. ADVAIR DISKUS 100/50 [Concomitant]
  3. SINGULAIR [Concomitant]
  4. ANTICHOLINERGIC DRUGS NOS (ANTICHOLINERGIC DRUGS NOS) [Concomitant]
  5. MEDROL [Concomitant]
  6. CELEBREX [Concomitant]

REACTIONS (2)
  - ANAPHYLACTIC REACTION [None]
  - CONVULSION [None]
